FAERS Safety Report 5957120-X (Version None)
Quarter: 2008Q4

REPORT INFORMATION
  Report Type: 
  Country: None (occurrence: None)
  Receive Date: 20081117
  Receipt Date: 20081117
  Transmission Date: 20090506
  Serious: Yes (Other)
  Sender: FDA-Public Use
  Company Number: None

PATIENT
  Age: 48 Year
  Sex: Female
  Weight: 88.4514 kg

DRUGS (2)
  1. COMPAZINE [Suspect]
     Indication: HEADACHE
     Dosage: 2.5 MG ONCE IV BOLUS
     Route: 040
     Dates: start: 20081019, end: 20081019
  2. COMPAZINE [Suspect]
     Indication: NAUSEA
     Dosage: 2.5 MG ONCE IV BOLUS
     Route: 040
     Dates: start: 20081019, end: 20081019

REACTIONS (4)
  - ERYTHEMA [None]
  - PAIN [None]
  - SWELLING [None]
  - THROMBOPHLEBITIS [None]
